FAERS Safety Report 5113352-4 (Version None)
Quarter: 2006Q3

REPORT INFORMATION
  Report Type: 
  Country: None (occurrence: None)
  Receive Date: 20060920
  Receipt Date: 20060911
  Transmission Date: 20061208
  Serious: Yes (Hospitalization, Other)
  Sender: FDA-Public Use
  Company Number: 2006110296

PATIENT
  Age: 45 Year
  Sex: Female
  Weight: 63.5036 kg

DRUGS (2)
  1. ZOLOFT [Suspect]
     Indication: ANXIETY
     Dosage: 50 MG (50 MG, FREQUENCY: QD INTERVAL: EVERYDAY)
     Dates: start: 20060812
  2. SYNTHROID [Concomitant]

REACTIONS (7)
  - CHILLS [None]
  - DRUG HYPERSENSITIVITY [None]
  - EAR DISCOMFORT [None]
  - SINUS DISORDER [None]
  - SKIN BURNING SENSATION [None]
  - STOMATITIS [None]
  - TREMOR [None]
